FAERS Safety Report 4703767-8 (Version None)
Quarter: 2005Q2

REPORT INFORMATION
  Report Type: 
  Country: None (occurrence: None)
  Receive Date: 20050628
  Receipt Date: 20050620
  Transmission Date: 20051028
  Serious: Yes (Hospitalization)
  Sender: FDA-Public Use
  Company Number: STA-AE-05-019

PATIENT
  Age: 22 Year
  Sex: Female

DRUGS (3)
  1. PROPYLTHIOURACIL [Suspect]
     Dosage: 150 MG DAILY
     Dates: start: 19961001
  2. PROPYLTHIOURACIL [Suspect]
     Dosage: 300 MG DAILY
  3. LEVOTHYROXINE [Concomitant]

REACTIONS (30)
  - ABDOMINAL PAIN [None]
  - ACID FAST STAIN POSITIVE [None]
  - ANOREXIA [None]
  - ANTI-NEUTROPHIL CYTOPLASMIC ANTIBODY POSITIVE VASCULITIS [None]
  - ANTINUCLEAR ANTIBODY POSITIVE [None]
  - ARTHRALGIA [None]
  - AUTOIMMUNE DISORDER [None]
  - BLISTER [None]
  - BLOOD THYROID STIMULATING HORMONE DECREASED [None]
  - CONJUNCTIVITIS [None]
  - DEAFNESS NEUROSENSORY [None]
  - EXOPHTHALMOS [None]
  - FREQUENT BOWEL MOVEMENTS [None]
  - GOITRE [None]
  - GRANULOMA [None]
  - HAEMATOCRIT DECREASED [None]
  - HYPOACUSIS [None]
  - INNER EAR DISORDER [None]
  - JOINT SWELLING [None]
  - NAUSEA [None]
  - OCULAR HYPERAEMIA [None]
  - PANNICULITIS [None]
  - PLATELET COUNT INCREASED [None]
  - PNEUMONIA NECROTISING [None]
  - PYREXIA [None]
  - RASH PAPULAR [None]
  - RASH PUSTULAR [None]
  - TINNITUS [None]
  - VERTIGO [None]
  - WEIGHT DECREASED [None]
